FAERS Safety Report 9396087 (Version 1)
Quarter: 2013Q3

REPORT INFORMATION
  Report Type: Spontaneous
  Country: FR (occurrence: FR)
  Receive Date: 20130711
  Receipt Date: 20130711
  Transmission Date: 20140515
  Serious: Yes (Death, Other)
  Sender: FDA-Public Use
  Company Number: FR-JNJFOC-20130700247

PATIENT
  Age: 20 Year
  Sex: Female

DRUGS (3)
  1. RISPERDAL [Suspect]
     Indication: PRODUCT USED FOR UNKNOWN INDICATION
     Route: 065
  2. LEPTICUR [Concomitant]
     Route: 065
  3. STILNOX [Concomitant]
     Route: 065

REACTIONS (2)
  - Cardiac arrest [Fatal]
  - Paranoia [Unknown]
